FAERS Safety Report 14190853 (Version 1)
Quarter: 2017Q4

REPORT INFORMATION
  Report Type: Spontaneous
  Country: US (occurrence: US)
  Receive Date: 20171115
  Receipt Date: 20171115
  Transmission Date: 20180321
  Serious: Yes (Death, Hospitalization)
  Sender: FDA-Public Use
  Company Number: US-JNJFOC-20171114856

PATIENT

DRUGS (1)
  1. INVOKANA [Suspect]
     Active Substance: CANAGLIFLOZIN
     Indication: DIABETES MELLITUS
     Route: 048
     Dates: start: 20150306

REACTIONS (7)
  - Urinary tract infection [Fatal]
  - Diabetic ketoacidosis [Fatal]
  - Hypokalaemia [Fatal]
  - Toxic encephalopathy [Fatal]
  - Dehydration [Fatal]
  - Cerebrovascular accident [Fatal]
  - Acute kidney injury [Fatal]

NARRATIVE: CASE EVENT DATE: 20150618
